FAERS Safety Report 8045720-5 (Version None)
Quarter: 2012Q1

REPORT INFORMATION
  Report Type: 
  Country: None (occurrence: None)
  Receive Date: 20120112
  Receipt Date: 20120112
  Transmission Date: 20120608
  Serious: No
  Sender: FDA-Public Use
  Company Number: None

PATIENT
  Sex: Female
  Weight: 53.97 kg

DRUGS (2)
  1. CARBOPLATIN [Suspect]
     Dosage: 413 MG
     Dates: end: 20111209
  2. TAXOL [Suspect]
     Dosage: 272 MG
     Dates: end: 20111209

REACTIONS (1)
  - HYPOMAGNESAEMIA [None]
